FAERS Safety Report 13919867 (Version 4)
Quarter: 2017Q3

REPORT INFORMATION
  Report Type: Spontaneous
  Country: AU (occurrence: AU)
  Receive Date: 20170830
  Receipt Date: 20170925
  Transmission Date: 20171127
  Serious: Yes (Hospitalization, Disabling, Other)
  Sender: FDA-Public Use
  Company Number: AU-009507513-1708AUS010526

PATIENT
  Age: 10 Year
  Sex: Female
  Weight: 40 kg

DRUGS (9)
  1. LORATADINE. [Concomitant]
     Active Substance: LORATADINE
     Indication: HYPERSENSITIVITY
     Dosage: 10 MG, PRN
     Route: 048
     Dates: start: 2014
  2. SODIUM PHOSPHATE [Concomitant]
     Active Substance: SODIUM PHOSPHATE
     Dosage: UNK
     Route: 048
  3. NASONEX [Suspect]
     Active Substance: MOMETASONE FUROATE
     Dosage: 2 DF, HS (1 PUFF BOTH SIDES BEDTIME)
     Route: 045
     Dates: start: 20160221, end: 201701
  4. NASONEX [Suspect]
     Active Substance: MOMETASONE FUROATE
     Dosage: 1 DF, HS
     Route: 045
     Dates: start: 201701, end: 201708
  5. DEXAMETHASONE. [Suspect]
     Active Substance: DEXAMETHASONE
     Indication: PRODUCT USED FOR UNKNOWN INDICATION
     Dosage: UNK
     Route: 042
     Dates: start: 201607
  6. REDIPRED [Suspect]
     Active Substance: PREDNISOLONE\PREDNISOLONE SODIUM PHOSPHATE
     Indication: PRODUCT USED FOR UNKNOWN INDICATION
     Dosage: UNK
     Route: 048
     Dates: start: 201607
  7. NASONEX [Suspect]
     Active Substance: MOMETASONE FUROATE
     Indication: SLEEP APNOEA SYNDROME
     Dosage: 1 DF, HS (1 PUFF BOTH SIDES BEDTIME)
     Route: 045
     Dates: start: 201502, end: 201701
  8. NASONEX [Suspect]
     Active Substance: MOMETASONE FUROATE
     Dosage: 1 DF, QD
     Route: 045
     Dates: start: 201701, end: 201708
  9. NASONEX [Suspect]
     Active Substance: MOMETASONE FUROATE
     Indication: HYPERSENSITIVITY
     Dosage: 2 DF, HS
     Route: 045
     Dates: start: 201701, end: 20170109

REACTIONS (8)
  - Inappropriate schedule of drug administration [Unknown]
  - Cataract [Not Recovered/Not Resolved]
  - Visual impairment [Unknown]
  - Myopia [Not Recovered/Not Resolved]
  - Adenotonsillectomy [Unknown]
  - Myopia [Unknown]
  - Intraocular pressure increased [Not Recovered/Not Resolved]
  - Visual impairment [Not Recovered/Not Resolved]

NARRATIVE: CASE EVENT DATE: 201607
